FAERS Safety Report 8305067-6 (Version None)
Quarter: 2012Q2

REPORT INFORMATION
  Report Type: 
  Country: None (occurrence: None)
  Receive Date: 20120423
  Receipt Date: 20120420
  Transmission Date: 20120825
  Serious: No
  Sender: FDA-Public Use
  Company Number: US-TEVA-334274USA

PATIENT
  Sex: Female

DRUGS (3)
  1. GABAPENTIN [Concomitant]
  2. COPAXONE [Suspect]
     Indication: MULTIPLE SCLEROSIS
     Route: 058
     Dates: start: 20120412
  3. BACLOFEN [Concomitant]

REACTIONS (3)
  - CHILLS [None]
  - GAIT DISTURBANCE [None]
  - FALL [None]
